FAERS Safety Report 6396337-X (Version None)
Quarter: 2009Q4

REPORT INFORMATION
  Report Type: 
  Country: None (occurrence: None)
  Receive Date: 20091012
  Receipt Date: 20091007
  Transmission Date: 20100525
  Serious: Yes (Other)
  Sender: FDA-Public Use
  Company Number: US-RANBAXY-2009US-27218

PATIENT

DRUGS (2)
  1. ISOTRETINOIN [Suspect]
     Indication: ACNE
     Dosage: 20 MG, TID
     Route: 048
     Dates: start: 20090204, end: 20090829
  2. ISOTRETINOIN [Suspect]
     Dosage: 40 MG, BID
     Route: 048
     Dates: end: 20090518

REACTIONS (7)
  - ANXIETY [None]
  - DEPRESSION [None]
  - EPISTAXIS [None]
  - HEADACHE [None]
  - INTENTIONAL SELF-INJURY [None]
  - MOOD ALTERED [None]
  - SUICIDAL IDEATION [None]
